FAERS Safety Report 8585478-4 (Version None)
Quarter: 2012Q3

REPORT INFORMATION
  Report Type: 
  Country: None (occurrence: None)
  Receive Date: 20120810
  Receipt Date: 20111220
  Transmission Date: 20120928
  Serious: No
  Sender: FDA-Public Use
  Company Number: US-GLAXOSMITHKLINE-A0958818A

PATIENT
  Age: 79 Year
  Sex: Female
  Weight: 56.8 kg

DRUGS (10)
  1. REQUIP XL [Suspect]
     Dosage: 8MG PER DAY
     Route: 048
     Dates: start: 20110601, end: 20110611
  2. SYMBICORT [Concomitant]
  3. METOPROLOL TARTRATE [Concomitant]
     Route: 048
  4. ROPINIROLE [Concomitant]
     Route: 048
  5. METHOCARBAMOL [Concomitant]
  6. CITALOPRAM HYDROBROMIDE [Concomitant]
  7. NIFEDIPINE [Concomitant]
     Route: 048
  8. PRAMIPEXOLE DIHYCHLORIDE [Concomitant]
     Route: 048
  9. TRAZODONE HYDROCHLORIDE [Concomitant]
     Route: 048
  10. OXYCODONE HCL [Concomitant]
     Route: 048

REACTIONS (2)
  - PRURITUS [None]
  - PAIN [None]
